FAERS Safety Report 7227900-1 (Version None)
Quarter: 2011Q1

REPORT INFORMATION
  Report Type: 
  Country: None (occurrence: None)
  Receive Date: 20110111
  Receipt Date: 20110111
  Transmission Date: 20110831
  Serious: Yes (Hospitalization)
  Sender: FDA-Public Use
  Company Number: None

PATIENT
  Age: 42 Year
  Sex: Female
  Weight: 61.2356 kg

DRUGS (1)
  1. RECLAST [Suspect]
     Indication: OSTEOPOROSIS
     Dosage: INFUSION 1 X YEAR IV
     Route: 042
     Dates: start: 20101103, end: 20101103

REACTIONS (9)
  - ULCER HAEMORRHAGE [None]
  - BLOOD PRESSURE DECREASED [None]
  - RENAL FAILURE [None]
  - BONE PAIN [None]
  - INFLUENZA LIKE ILLNESS [None]
  - HAEMATEMESIS [None]
  - LOSS OF CONSCIOUSNESS [None]
  - CONFUSIONAL STATE [None]
  - MENTAL DISORDER [None]
